FAERS Safety Report 22148954 (Version 1)
Quarter: 2023Q1

REPORT INFORMATION
  Report Type: Spontaneous
  Country: PL (occurrence: PL)
  Receive Date: 20230328
  Receipt Date: 20230328
  Transmission Date: 20230417
  Serious: Yes (Other)
  Sender: FDA-Public Use
  Company Number: PL-GILEAD-2023-0621687

PATIENT
  Age: 39 Year
  Sex: Female

DRUGS (12)
  1. BIKTARVY [Suspect]
     Active Substance: BICTEGRAVIR SODIUM\EMTRICITABINE\TENOFOVIR ALAFENAMIDE FUMARATE
     Indication: HIV infection
     Dosage: UNK
     Route: 065
     Dates: start: 202205
  2. REMDESIVIR [Suspect]
     Active Substance: REMDESIVIR
     Indication: COVID-19
     Route: 065
  3. MOLNUPIRAVIR [Concomitant]
     Active Substance: MOLNUPIRAVIR
  4. BARICITINIB [Concomitant]
     Active Substance: BARICITINIB
  5. CEFTRIAXONE [Concomitant]
     Active Substance: CEFTRIAXONE
  6. LEVOFLOXACIN [Concomitant]
     Active Substance: LEVOFLOXACIN
  7. BISEPTOL [Concomitant]
     Active Substance: SULFAMETHOXAZOLE\TRIMETHOPRIM
  8. DEXAMETHASONE [Concomitant]
     Active Substance: DEXAMETHASONE
  9. OXYGEN [Concomitant]
     Active Substance: OXYGEN
  10. ENOXAPARIN SODIUM [Concomitant]
     Active Substance: ENOXAPARIN SODIUM
  11. FLUCONAZOLE [Concomitant]
     Active Substance: FLUCONAZOLE
  12. CLARITHROMYCIN [Concomitant]
     Active Substance: CLARITHROMYCIN

REACTIONS (1)
  - Chorioretinitis [Unknown]

NARRATIVE: CASE EVENT DATE: 20220601
